FAERS Safety Report 15504344 (Version 1)
Quarter: 2018Q4

REPORT INFORMATION
  Report Type: Report from Study
  Country: None (occurrence: BE)
  Receive Date: 20181016
  Receipt Date: 20181016
  Transmission Date: 20190205
  Serious: Yes (Hospitalization)
  Sender: FDA-Public Use
  Company Number: BE-ABBVIE-18S-013-2512481-00

PATIENT
  Sex: Male

DRUGS (3)
  1. DUODOPA [Suspect]
     Active Substance: CARBIDOPA\LEVODOPA
     Indication: PARKINSON^S DISEASE
     Dosage: MD=7ML CD=4.2ML/HR DURING 16HRS  ED=4ML
     Route: 050
     Dates: start: 20110228, end: 20110303
  2. DUODOPA [Suspect]
     Active Substance: CARBIDOPA\LEVODOPA
     Dosage: MD=7ML CD=3.4ML/HR DURING 16HRS  ED=4ML
     Route: 050
     Dates: start: 20180124
  3. DUODOPA [Suspect]
     Active Substance: CARBIDOPA\LEVODOPA
     Dosage: DOSES CONTINUOUSLY MONITORED AND ADAPTED
     Route: 050
     Dates: start: 20110303, end: 20180124

REACTIONS (7)
  - Abscess [Unknown]
  - Dyskinesia [Unknown]
  - Device dislocation [Recovered/Resolved with Sequelae]
  - Incorrect route of product administration [Unknown]
  - Stoma site hypergranulation [Unknown]
  - Device issue [Unknown]
  - Osteomyelitis bacterial [Unknown]

NARRATIVE: CASE EVENT DATE: 2018
